FAERS Safety Report 22228985 (Version 1)
Quarter: 2023Q2

REPORT INFORMATION
  Report Type: Spontaneous
  Country: US (occurrence: US)
  Receive Date: 20230419
  Receipt Date: 20230419
  Transmission Date: 20230722
  Serious: Yes (Life-Threatening, Hospitalization, Other)
  Sender: FDA-Public Use
  Company Number: US-SA-SAC20230418000873

PATIENT
  Age: 67 Year
  Sex: Male

DRUGS (19)
  1. DOCETAXEL [Suspect]
     Active Substance: DOCETAXEL
     Indication: Non-small cell lung cancer metastatic
     Dosage: 155 MG
     Route: 042
     Dates: start: 20230217
  2. OBINUTUZUMAB [Concomitant]
     Active Substance: OBINUTUZUMAB
     Dosage: 1000 MG
     Route: 042
     Dates: start: 20230131
  3. HYDROCODONE [Concomitant]
     Active Substance: HYDROCODONE
     Indication: Cough
     Dosage: 10 MG, PRN
     Route: 048
     Dates: start: 2021
  4. HYDROCODONE [Concomitant]
     Active Substance: HYDROCODONE
     Indication: Pain
  5. ACETAMINOPHEN [Concomitant]
     Active Substance: ACETAMINOPHEN
     Indication: Pain
     Dosage: UNK, PRN
     Route: 048
     Dates: start: 2021
  6. ACETAMINOPHEN [Concomitant]
     Active Substance: ACETAMINOPHEN
     Indication: Pyrexia
  7. SYNTHROID [Concomitant]
     Active Substance: LEVOTHYROXINE SODIUM
     Indication: Thyroiditis
     Dosage: 75 UG
     Route: 048
     Dates: start: 202207, end: 20230127
  8. MOTRIN [Concomitant]
     Active Substance: IBUPROFEN
     Indication: Pyrexia
     Dosage: 800 MG
     Route: 048
     Dates: start: 2021
  9. MOTRIN [Concomitant]
     Active Substance: IBUPROFEN
     Indication: Pain
  10. LIDOCAINE\PRILOCAINE [Concomitant]
     Active Substance: LIDOCAINE\PRILOCAINE
     Indication: Pain
     Dosage: UNK
     Dates: start: 20220113
  11. EZETIMIBE [Concomitant]
     Active Substance: EZETIMIBE
     Indication: Hyperlipidaemia
     Dosage: 10 MG
     Route: 048
     Dates: start: 20211021
  12. NITROGLYCERIN [Concomitant]
     Active Substance: NITROGLYCERIN
     Indication: Chest pain
     Dosage: 0.4 MG, PRN
     Route: 060
     Dates: start: 2000
  13. OMEPRAZOLE [Concomitant]
     Active Substance: OMEPRAZOLE
     Indication: Gastrooesophageal reflux disease
     Dosage: 40 MG
     Route: 048
     Dates: start: 20020805
  14. OMEPRAZOLE [Concomitant]
     Active Substance: OMEPRAZOLE
     Indication: Oesophagitis
  15. ATORVASTATIN [Concomitant]
     Active Substance: ATORVASTATIN
     Indication: Hyperlipidaemia
     Dosage: 80 MG, QD
     Route: 048
     Dates: start: 2021
  16. TAMSULOSIN [Concomitant]
     Active Substance: TAMSULOSIN
     Indication: Urinary retention
     Dosage: UNK, QD
     Route: 048
     Dates: start: 20211123
  17. METOPROLOL TARTRATE [Concomitant]
     Active Substance: METOPROLOL TARTRATE
     Indication: Hypertension
     Dosage: 25 MG, QD
     Route: 048
     Dates: start: 20211001
  18. METOPROLOL TARTRATE [Concomitant]
     Active Substance: METOPROLOL TARTRATE
     Indication: Atrial fibrillation
  19. SATIVA SOFT [Concomitant]
     Indication: Appetite disorder
     Dosage: 5 MG, PRN
     Route: 048
     Dates: start: 2021

REACTIONS (13)
  - Sepsis [Recovered/Resolved]
  - Atrial fibrillation [Recovered/Resolved]
  - Loss of consciousness [Unknown]
  - Hypotension [Recovering/Resolving]
  - Asthenia [Unknown]
  - Tachycardia [Unknown]
  - Pain [Unknown]
  - Nausea [Unknown]
  - Tachypnoea [Unknown]
  - Chills [Unknown]
  - Head injury [Unknown]
  - Fall [Unknown]
  - Hypophagia [Unknown]

NARRATIVE: CASE EVENT DATE: 20230222
